FAERS Safety Report 8839773 (Version 1)
Quarter: 2012Q4

REPORT INFORMATION
  Report Type: Spontaneous
  Country: GB (occurrence: None)
  Receive Date: 20121011
  Receipt Date: 20121011
  Transmission Date: 20130627
  Serious: Yes (Other)
  Sender: FDA-Public Use
  Company Number: AUR-APU-2012-04251

PATIENT
  Sex: Female

DRUGS (1)
  1. SERTRALINE (SERTRALINE) (SERTRALINE) [Suspect]
     Indication: DEPRESSION
     Route: 048
     Dates: start: 20120926, end: 20120926

REACTIONS (8)
  - Drug dispensing error [None]
  - Incorrect dose administered [None]
  - Feeling abnormal [None]
  - Feeling abnormal [None]
  - Feeling abnormal [None]
  - Nervousness [None]
  - Dry mouth [None]
  - Insomnia [None]
